FAERS Safety Report 14438163 (Version 1)
Quarter: 2018Q1

REPORT INFORMATION
  Report Type: Spontaneous
  Country: US (occurrence: US)
  Receive Date: 20180125
  Receipt Date: 20180125
  Transmission Date: 20180509
  Serious: Yes (Hospitalization)
  Sender: FDA-Public Use
  Company Number: US-JNJFOC-20180124931

PATIENT
  Age: 40 Year
  Sex: Female

DRUGS (2)
  1. INVOKANA [Suspect]
     Active Substance: CANAGLIFLOZIN
     Indication: TYPE 2 DIABETES MELLITUS
     Route: 048
     Dates: end: 20161116
  2. GLUCOPHAGE [Suspect]
     Active Substance: METFORMIN HYDROCHLORIDE
     Indication: PRODUCT USED FOR UNKNOWN INDICATION
     Route: 048
     Dates: end: 20161116

REACTIONS (7)
  - Diabetic foot [Recovering/Resolving]
  - Toe amputation [Recovering/Resolving]
  - Acute kidney injury [Recovering/Resolving]
  - Osteomyelitis [Recovering/Resolving]
  - Gangrene [Recovering/Resolving]
  - Toe amputation [Recovering/Resolving]
  - Acute respiratory failure [Recovered/Resolved]

NARRATIVE: CASE EVENT DATE: 20160419
